FAERS Safety Report 24407309 (Version 3)
Quarter: 2025Q1

REPORT INFORMATION
  Report Type: Spontaneous
  Country: US (occurrence: US)
  Receive Date: 20241007
  Receipt Date: 20250318
  Transmission Date: 20250409
  Serious: No
  Sender: SANOFI AVENTIS
  Company Number: US-SA-2024SA283276

PATIENT
  Age: 72 Year
  Sex: Female

DRUGS (1)
  1. DUPIXENT [Suspect]
     Active Substance: DUPILUMAB
     Indication: Dermatitis allergic
     Dosage: 300 MG, QOW
     Route: 058

REACTIONS (9)
  - Psoriasis [Unknown]
  - Alopecia [Unknown]
  - Dermatitis allergic [Recovered/Resolved]
  - Condition aggravated [Recovered/Resolved]
  - Skin fissures [Recovered/Resolved]
  - Skin exfoliation [Recovered/Resolved]
  - Rash pruritic [Recovered/Resolved]
  - Drug ineffective [Unknown]
  - Unintentional use for unapproved indication [Unknown]

NARRATIVE: CASE EVENT DATE: 20240901
